FAERS Safety Report 8401102-5 (Version None)
Quarter: 2012Q2

REPORT INFORMATION
  Report Type: 
  Country: None (occurrence: None)
  Receive Date: 20120601
  Receipt Date: 20120529
  Transmission Date: 20120825
  Serious: No
  Sender: FDA-Public Use
  Company Number: US-PFIZER INC-2012128965

PATIENT
  Sex: Female

DRUGS (1)
  1. SUTENT [Suspect]
     Indication: BRAIN NEOPLASM
     Dosage: 50 MG, 1X/DAY
     Dates: start: 20120410

REACTIONS (4)
  - NAUSEA [None]
  - DECREASED APPETITE [None]
  - FATIGUE [None]
  - ASTHENIA [None]
